FAERS Safety Report 5042050-0 (Version None)
Quarter: 2006Q2

REPORT INFORMATION
  Report Type: 
  Country: None (occurrence: None)
  Receive Date: 20060630
  Receipt Date: 20060627
  Transmission Date: 20061013
  Serious: Yes (Other)
  Sender: FDA-Public Use
  Company Number: 2006-02562

PATIENT
  Age: 70 Year
  Sex: Male

DRUGS (1)
  1. KENTERA (WATSON LABORATORIES)TRANSDERMAL PATCH, 3.9 MG [Suspect]
     Dosage: TRANSDERMAL
     Route: 062
     Dates: start: 20060101

REACTIONS (2)
  - HENOCH-SCHONLEIN PURPURA [None]
  - SKIN HAEMORRHAGE [None]
